APPROVED DRUG PRODUCT: SELENIOUS ACID
Active Ingredient: SELENIOUS ACID
Strength: EQ 600MCG SELENIUM/10ML (EQ 60MCG SELENIUM/ML)
Dosage Form/Route: SOLUTION;INTRAVENOUS
Application: A219472 | Product #001 | TE Code: AP
Applicant: KINDOS PHARMACEUTICALS CO LTD
Approved: Feb 3, 2026 | RLD: No | RS: No | Type: RX